FAERS Safety Report 21243886 (Version 13)
Quarter: 2024Q2

REPORT INFORMATION
  Report Type: Spontaneous
  Country: US (occurrence: US)
  Receive Date: 20220823
  Receipt Date: 20240620
  Transmission Date: 20240715
  Serious: Yes (Other)
  Sender: FDA-Public Use
  Company Number: US-PFIZER INC-PV202200048158

PATIENT
  Age: 87 Year
  Sex: Female

DRUGS (2)
  1. IBRANCE [Suspect]
     Active Substance: PALBOCICLIB
     Indication: Breast cancer female
     Dosage: 100 MG
     Route: 048
  2. IBRANCE [Suspect]
     Active Substance: PALBOCICLIB
     Dosage: 1 TABLET BY MOUTH EVERY DAY  FOR 21 DAYS ON FOLLOWED BY 7 DAYS OFF
     Route: 048
     Dates: start: 20220823

REACTIONS (10)
  - Ileus [Unknown]
  - Neutropenia [Unknown]
  - Full blood count decreased [Recovered/Resolved]
  - Neutrophil count decreased [Unknown]
  - Alopecia [Unknown]
  - Enuresis [Unknown]
  - Urinary incontinence [Unknown]
  - Fluid retention [Unknown]
  - White blood cell count decreased [Not Recovered/Not Resolved]
  - COVID-19 [Unknown]
